FAERS Safety Report 7554139-2 (Version None)
Quarter: 2011Q2

REPORT INFORMATION
  Report Type: 
  Country: None (occurrence: None)
  Receive Date: 20110617
  Receipt Date: 20110602
  Transmission Date: 20111010
  Serious: Yes (Hospitalization)
  Sender: FDA-Public Use
  Company Number: US-JNJFOC-20110302754

PATIENT
  Sex: Male
  Weight: 94.35 kg

DRUGS (16)
  1. METHOTREXATE [Concomitant]
     Indication: COLITIS ULCERATIVE
     Dosage: DOSE REPORTED AS ^64 MG/TABLET/4 MG/ONCE EVERY TWELVE WEEKS/ORAL^
     Route: 048
  2. REMICADE [Suspect]
     Route: 042
     Dates: start: 20100804, end: 20100804
  3. REMICADE [Suspect]
     Route: 042
     Dates: start: 20110119, end: 20110119
  4. AZATHIOPRINE [Concomitant]
     Indication: PROPHYLAXIS
     Dosage: INDICATION-^NOT TO REJECT INFLIXIMAB^  DOSE- UNCLEAR
     Route: 048
  5. REMICADE [Suspect]
     Indication: COLITIS ULCERATIVE
     Route: 042
     Dates: start: 20080123, end: 20080123
  6. REMICADE [Suspect]
     Route: 042
     Dates: start: 20090202, end: 20090202
  7. REMICADE [Suspect]
     Route: 042
     Dates: start: 20090424, end: 20090424
  8. REMICADE [Suspect]
     Route: 042
     Dates: start: 20100512, end: 20100512
  9. PREDNISONE [Suspect]
     Indication: PRODUCT USED FOR UNKNOWN INDICATION
  10. REMICADE [Suspect]
     Route: 042
     Dates: start: 20080917, end: 20080917
  11. REMICADE [Suspect]
     Route: 042
     Dates: start: 20090803, end: 20090803
  12. REMICADE [Suspect]
     Route: 042
     Dates: start: 20080112, end: 20080112
  13. LIALDA [Concomitant]
     Indication: COLITIS ULCERATIVE
     Route: 048
     Dates: start: 20010101
  14. REMICADE [Suspect]
     Route: 042
     Dates: start: 20100627, end: 20100627
  15. REMICADE [Suspect]
     Route: 042
     Dates: start: 20110329
  16. SIMVASTATIN [Concomitant]
     Indication: BLOOD CHOLESTEROL INCREASED
     Route: 048
     Dates: start: 20010101

REACTIONS (9)
  - COUGH [None]
  - HYPERTENSION [None]
  - LIVER DISORDER [None]
  - PYREXIA [None]
  - NAUSEA [None]
  - NERVOUSNESS [None]
  - DIABETES MELLITUS [None]
  - ARTERIAL OCCLUSIVE DISEASE [None]
  - GALLBLADDER DISORDER [None]
